FAERS Safety Report 9392262 (Version 2)
Quarter: 2013Q3

REPORT INFORMATION
  Report Type: Report from Study
  Country: BR (occurrence: BR)
  Receive Date: 20130710
  Receipt Date: 20130906
  Transmission Date: 20140515
  Serious: Yes (Other)
  Sender: FDA-Public Use
  Company Number: BR-ROCHE-1244310

PATIENT
  Age: 43 Year
  Sex: Female
  Weight: 70 kg

DRUGS (12)
  1. XOLAIR [Suspect]
     Indication: SARCOIDOSIS
     Route: 065
     Dates: start: 2008
  2. KOIDE D [Concomitant]
  3. PREDNISONE [Concomitant]
     Route: 065
     Dates: start: 2007
  4. PREDNISONE [Concomitant]
     Route: 065
     Dates: start: 2008
  5. SERETIDE [Concomitant]
     Dosage: 50/500
     Route: 065
  6. DUOVENT [Concomitant]
  7. AEROLIN [Concomitant]
     Route: 065
     Dates: start: 2004
  8. AEROLIN [Concomitant]
     Route: 065
     Dates: start: 2007
  9. APRESOLINE [Concomitant]
     Route: 065
     Dates: start: 2013
  10. LOSARTAN [Concomitant]
  11. HYDROCHLOROTHIAZIDE [Concomitant]
  12. SPIRIVA [Concomitant]

REACTIONS (7)
  - Hepatic neoplasm [Recovered/Resolved]
  - Atrioventricular block [Recovered/Resolved]
  - Malaise [Recovered/Resolved]
  - Dyspnoea [Recovered/Resolved]
  - Pain in extremity [Recovered/Resolved]
  - Hypertension [Recovered/Resolved]
  - Fatigue [Recovered/Resolved]
